FAERS Safety Report 7524736-9 (Version None)
Quarter: 2011Q2

REPORT INFORMATION
  Report Type: 
  Country: None (occurrence: None)
  Receive Date: 20110525
  Receipt Date: 20110519
  Transmission Date: 20111010
  Serious: Yes (Hospitalization)
  Sender: FDA-Public Use
  Company Number: 2011105297

PATIENT
  Age: 81 Year
  Sex: Female

DRUGS (16)
  1. VALSARTAN AND HYDROCHLOROTHIAZIDE [Suspect]
     Indication: BLOOD PRESSURE INCREASED
     Dosage: 160 MG DAILY, ORAL
     Route: 048
     Dates: start: 20110309, end: 20110511
  2. FLUOXETINE HYDROCHLORIDE [Concomitant]
  3. NITROGLYCERIN [Concomitant]
  4. TIMOLOL MALEATE [Concomitant]
  5. LANTUS [Concomitant]
  6. LASIX [Suspect]
     Indication: BLOOD PRESSURE INCREASED
     Dosage: 150 MG DAILY, ORAL
     Route: 048
     Dates: start: 20110309, end: 20110511
  7. FRAGMIN [Suspect]
     Indication: PROPHYLAXIS
     Dosage: 5000 IU DAILY, SUBCUTANEOUS
     Route: 058
     Dates: start: 20110309, end: 20110511
  8. FRAGMIN [Suspect]
     Indication: MYOCARDIAL ISCHAEMIA
     Dosage: 5000 IU DAILY, SUBCUTANEOUS
     Route: 058
     Dates: start: 20110309, end: 20110511
  9. CARVEDILOL [Suspect]
     Indication: HYPERTENSION
     Dosage: 6.25 MG, DAILY, ORAL
     Route: 048
     Dates: start: 20110309, end: 20110511
  10. ASPIRIN [Suspect]
     Indication: MYOCARDIAL ISCHAEMIA
     Dosage: 100 MG DAILY, ORAL
     Route: 048
     Dates: start: 20110309, end: 20110511
  11. HUMALOG [Concomitant]
  12. RANEXA [Concomitant]
  13. PLAVIX [Suspect]
     Indication: ARTERIAL DISORDER
     Dosage: 75 MG DAILY, ORAL
     Route: 048
     Dates: start: 20110309, end: 20110511
  14. XALATAN [Concomitant]
  15. SIMVASTATIN [Concomitant]
  16. LANSOPRAZOLE [Concomitant]

REACTIONS (3)
  - HYPOTENSION [None]
  - SYNCOPE [None]
  - NAUSEA [None]
